FAERS Safety Report 8224584-0 (Version None)
Quarter: 2012Q1

REPORT INFORMATION
  Report Type: 
  Country: None (occurrence: None)
  Receive Date: 20120321
  Receipt Date: 20120309
  Transmission Date: 20120608
  Serious: Yes (Other)
  Sender: FDA-Public Use
  Company Number: ES-ELI_LILLY_AND_COMPANY-ES201203003003

PATIENT
  Age: 11 Year

DRUGS (1)
  1. STRATTERA [Suspect]
     Indication: ATTENTION DEFICIT/HYPERACTIVITY DISORDER
     Dosage: 18 MG, UNK
     Route: 048
     Dates: start: 20120118, end: 20120206

REACTIONS (4)
  - AGGRESSION [None]
  - INAPPROPRIATE AFFECT [None]
  - AGITATION [None]
  - ABNORMAL BEHAVIOUR [None]
